FAERS Safety Report 8820627 (Version 6)
Quarter: 2013Q1

REPORT INFORMATION
  Report Type: Spontaneous
  Country: DE (occurrence: DE)
  Receive Date: 20121002
  Receipt Date: 20130304
  Transmission Date: 20140127
  Serious: Yes (Other)
  Sender: FDA-Public Use
  Company Number: DE-JNJFOC-20120913111

PATIENT
  Age: 63 Year
  Sex: Male
  Weight: 77 kg

DRUGS (3)
  1. PALEXIA RETARD [Suspect]
     Indication: BACK PAIN
     Route: 048
     Dates: start: 20120604
  2. PALEXIA RETARD [Suspect]
     Indication: BACK PAIN
     Route: 048
     Dates: start: 201206, end: 20120703
  3. VOTUM [Concomitant]
     Indication: PRODUCT USED FOR UNKNOWN INDICATION
     Route: 065

REACTIONS (4)
  - Gamma-glutamyltransferase increased [Unknown]
  - Alanine aminotransferase increased [Unknown]
  - Aspartate aminotransferase increased [Unknown]
  - Biliary colic [Unknown]
